FAERS Safety Report 18698337 (Version 1)
Quarter: 2021Q1

REPORT INFORMATION
  Report Type: Spontaneous
  Country: US (occurrence: US)
  Receive Date: 20210104
  Receipt Date: 20210104
  Transmission Date: 20210419
  Serious: No
  Sender: FDA-Public Use
  Company Number: US-EAGLE PHARMACEUTICALS, INC.-US-2020EAG000129

PATIENT
  Age: 64 Year
  Sex: Female

DRUGS (2)
  1. TRUXIMA [Concomitant]
     Active Substance: RITUXIMAB-ABBS
     Indication: PRODUCT USED FOR UNKNOWN INDICATION
     Dosage: UNK (CYCLE 1)
     Route: 065
     Dates: start: 20200715
  2. BENDEKA [Suspect]
     Active Substance: BENDAMUSTINE HYDROCHLORIDE
     Indication: PRODUCT USED FOR UNKNOWN INDICATION
     Dosage: UNK (CYCLE 1)
     Route: 042
     Dates: start: 20200715

REACTIONS (1)
  - Product administration interrupted [Unknown]

NARRATIVE: CASE EVENT DATE: 20200715
